FAERS Safety Report 24739375 (Version 1)
Quarter: 2024Q4

REPORT INFORMATION
  Report Type: Spontaneous
  Country: AU (occurrence: AU)
  Receive Date: 20241216
  Receipt Date: 20241216
  Transmission Date: 20250114
  Serious: Yes (Death, Hospitalization)
  Sender: GE HEALTHCARE
  Company Number: None

PATIENT
  Age: 71 Year
  Sex: Male

DRUGS (9)
  1. OMNIPAQUE [Suspect]
     Active Substance: IOHEXOL
     Indication: Computerised tomogram
     Dosage: UNK UNK, TOTAL
     Route: 065
     Dates: start: 20240908, end: 20240908
  2. CEFTRIAXONE [Suspect]
     Active Substance: CEFTRIAXONE
     Dosage: 1 GM, TOTAL
     Route: 042
     Dates: start: 20240908, end: 20240908
  3. CHLORHEXIDINE [Suspect]
     Active Substance: CHLORHEXIDINE
     Dosage: UNK
     Route: 065
     Dates: start: 20240908
  4. DEXAMETHASONE [Suspect]
     Active Substance: DEXAMETHASONE
     Dosage: 8 MG, TOTAL
     Route: 042
     Dates: start: 20240908, end: 20240908
  5. NOREPINEPHRINE [Suspect]
     Active Substance: NOREPINEPHRINE\NOREPINEPHRINE BITARTRATE
     Dosage: UNK
     Dates: start: 20240908
  6. ACETAMINOPHEN [Suspect]
     Active Substance: ACETAMINOPHEN
     Dosage: 1 GM, TOTAL
     Route: 048
     Dates: start: 20240908, end: 20240908
  7. LOSARTAN [Concomitant]
     Active Substance: LOSARTAN
     Route: 065
  8. FLECAINIDE ACETATE [Concomitant]
     Active Substance: FLECAINIDE ACETATE
     Route: 065
  9. TAPENTADOL [Concomitant]
     Active Substance: TAPENTADOL
     Route: 065

REACTIONS (9)
  - Septic shock [Fatal]
  - Multiple organ dysfunction syndrome [Fatal]
  - Purpura fulminans [Fatal]
  - Confusional state [Fatal]
  - Dyspnoea [Fatal]
  - Hypotension [Fatal]
  - Oxygen saturation decreased [Fatal]
  - Rash erythematous [Fatal]
  - Respiratory distress [Fatal]

NARRATIVE: CASE EVENT DATE: 20240908
